FAERS Safety Report 8854322 (Version 1)
Quarter: 2012Q4

REPORT INFORMATION
  Report Type: Spontaneous
  Country: US (occurrence: None)
  Receive Date: 20121019
  Receipt Date: 20121019
  Transmission Date: 20130627
  Serious: Yes (Life-Threatening)
  Sender: FDA-Public Use
  Company Number: None

PATIENT
  Age: 68 Year
  Sex: Male
  Weight: 95.26 kg

DRUGS (1)
  1. PLAVIX [Suspect]
     Indication: LEUKEMIA
     Dates: start: 20000201, end: 20110801

REACTIONS (1)
  - Leukaemia [None]
